FAERS Safety Report 11183233 (Version 1)
Quarter: 2015Q2

REPORT INFORMATION
  Report Type: Spontaneous
  Country: DE (occurrence: DE)
  Receive Date: 20150611
  Receipt Date: 20150611
  Transmission Date: 20150821
  Serious: Yes (Other)
  Sender: FDA-Public Use
  Company Number: DE-TEVA-568023GER

PATIENT
  Age: 24 Year
  Sex: Male

DRUGS (1)
  1. METRONIDAZOL-CT 400MG TABLETTEN [Suspect]
     Active Substance: METRONIDAZOLE
     Indication: PERIODONTITIS
     Route: 065

REACTIONS (2)
  - Abdominal discomfort [Recovered/Resolved]
  - Angina pectoris [Recovered/Resolved]

NARRATIVE: CASE EVENT DATE: 20150418
